FAERS Safety Report 9984084 (Version 1)
Quarter: 2014Q1

REPORT INFORMATION
  Report Type: Report from Study
  Country: US (occurrence: US)
  Receive Date: 20140307
  Receipt Date: 20140307
  Transmission Date: 20141002
  Serious: No
  Sender: FDA-Public Use
  Company Number: US-ABBVIE-13P-163-1184240-00

PATIENT
  Age: 29 Year
  Sex: Male

DRUGS (7)
  1. HUMIRA [Suspect]
     Indication: CROHN^S DISEASE
     Dosage: LOADING DOSE
     Dates: start: 20131209, end: 20131209
  2. HUMIRA [Suspect]
  3. LIALDA [Concomitant]
     Indication: CROHN^S DISEASE
  4. SEROQUEL [Concomitant]
     Indication: ANXIETY
     Dosage: AT BEDTIME
  5. PRILOSEC [Concomitant]
     Indication: GASTROOESOPHAGEAL REFLUX DISEASE
  6. VIIBRYD [Concomitant]
     Indication: ANXIETY
  7. IMURAN [Concomitant]
     Indication: CROHN^S DISEASE

REACTIONS (2)
  - Abdominal pain upper [Not Recovered/Not Resolved]
  - Vomiting [Not Recovered/Not Resolved]
